FAERS Safety Report 5388060-5 (Version None)
Quarter: 2007Q3

REPORT INFORMATION
  Report Type: 
  Country: None (occurrence: None)
  Receive Date: 20070716
  Receipt Date: 20070704
  Transmission Date: 20080115
  Serious: Yes (Hospitalization)
  Sender: FDA-Public Use
  Company Number: FR-ROCHE-505769

PATIENT
  Sex: Female
  Weight: 2.2 kg

DRUGS (5)
  1. INVIRASE [Suspect]
     Dates: start: 20070430, end: 20070526
  2. KALETRA [Suspect]
     Dates: start: 20040101, end: 20070526
  3. COMBIVIR [Suspect]
     Dosage: START AT LEAST IN 1998.
     Dates: start: 19980101, end: 20070430
  4. TB MEDICATION [Concomitant]
     Dosage: DRUG REPORTED AS TB9.
  5. SPASFON [Concomitant]

REACTIONS (1)
  - ABDOMINAL DISTENSION [None]
